FAERS Safety Report 12111092 (Version 1)
Quarter: 2016Q1

REPORT INFORMATION
  Report Type: Spontaneous
  Country: US (occurrence: US)
  Receive Date: 20160224
  Receipt Date: 20160224
  Transmission Date: 20160526
  Serious: Yes (Hospitalization)
  Sender: FDA-Public Use
  Company Number: US-JAZZ-2015-US-007132

PATIENT
  Age: 41 Year
  Sex: Male

DRUGS (19)
  1. LISINOPRIL. [Concomitant]
     Active Substance: LISINOPRIL
  2. OXYCODONE HYDROCHLORIDE. [Concomitant]
     Active Substance: OXYCODONE HYDROCHLORIDE
  3. FENTANYL. [Suspect]
     Active Substance: FENTANYL
     Indication: PAIN
     Dosage: UNK ?G, QH
     Route: 037
  4. RANITIDINE [Concomitant]
     Active Substance: RANITIDINE\RANITIDINE HYDROCHLORIDE
  5. FERROUS SULFATE [Concomitant]
     Active Substance: FERROUS SULFATE\FERROUS SULFATE, DRIED
  6. METOPROLOL. [Concomitant]
     Active Substance: METOPROLOL
  7. KLOR-CON [Concomitant]
     Active Substance: POTASSIUM CHLORIDE
  8. PRIALT [Suspect]
     Active Substance: ZICONOTIDE ACETATE
     Indication: COMPLEX REGIONAL PAIN SYNDROME
     Dosage: 0.0095 ?G, QH
     Route: 037
     Dates: end: 20150511
  9. PRIALT [Suspect]
     Active Substance: ZICONOTIDE ACETATE
     Dosage: 0.00005 ?G, QH
     Route: 037
     Dates: start: 20150511, end: 20150513
  10. TRILEPTAL [Concomitant]
     Active Substance: OXCARBAZEPINE
  11. AMITRIPTYLINE HCL [Concomitant]
     Active Substance: AMITRIPTYLINE
  12. BRINTELIX [Concomitant]
  13. FENTANYL. [Suspect]
     Active Substance: FENTANYL
     Dosage: 0.088 ?G, QH
     Route: 037
     Dates: start: 20150511, end: 20150513
  14. PRIALT [Suspect]
     Active Substance: ZICONOTIDE ACETATE
     Indication: PAIN
     Dosage: UNK ?G, QH
     Route: 037
  15. PRIALT [Suspect]
     Active Substance: ZICONOTIDE ACETATE
     Dosage: 0.007 ?G, QH
     Route: 037
     Dates: start: 20150513
  16. FENTANYL. [Suspect]
     Active Substance: FENTANYL
     Dosage: 12.90 ?G, QH
     Route: 037
     Dates: start: 20150513
  17. ADDERALL [Concomitant]
     Active Substance: AMPHETAMINE ASPARTATE\AMPHETAMINE SULFATE\DEXTROAMPHETAMINE SACCHARATE\DEXTROAMPHETAMINE SULFATE
  18. FENTANYL. [Suspect]
     Active Substance: FENTANYL
     Indication: COMPLEX REGIONAL PAIN SYNDROME
     Dosage: 17.26 ?G, QH
     Route: 037
     Dates: end: 20150511
  19. FUROSEMIDE. [Concomitant]
     Active Substance: FUROSEMIDE

REACTIONS (4)
  - Pain [Recovered/Resolved]
  - Device issue [Recovered/Resolved]
  - Pruritus [Recovered/Resolved]
  - Drug withdrawal syndrome [Recovered/Resolved]

NARRATIVE: CASE EVENT DATE: 20150511
